FAERS Safety Report 11772842 (Version 2)
Quarter: 2015Q4

REPORT INFORMATION
  Report Type: Spontaneous
  Country: US (occurrence: US)
  Receive Date: 20151124
  Receipt Date: 20151228
  Transmission Date: 20160304
  Serious: Yes (Death, Hospitalization)
  Sender: FDA-Public Use
  Company Number: US-JNJFOC-20151120376

PATIENT
  Age: 64 Year
  Sex: Male

DRUGS (1)
  1. REMICADE [Suspect]
     Active Substance: INFLIXIMAB
     Indication: RHEUMATOID ARTHRITIS
     Route: 042

REACTIONS (11)
  - Urinary tract infection [Unknown]
  - Chills [Unknown]
  - Nasopharyngitis [Unknown]
  - Basal cell carcinoma [Unknown]
  - Pneumonia [Unknown]
  - Hyperhidrosis [Unknown]
  - Rash [Unknown]
  - Fatigue [Unknown]
  - Demyelination [Unknown]
  - Death [Fatal]
  - Cardiac failure congestive [Unknown]
